FAERS Safety Report 6043729-4 (Version None)
Quarter: 2009Q1

REPORT INFORMATION
  Report Type: 
  Country: None (occurrence: None)
  Receive Date: 20090120
  Receipt Date: 20090109
  Transmission Date: 20090719
  Serious: Yes (Other)
  Sender: FDA-Public Use
  Company Number: PHHY2008JP33188

PATIENT
  Sex: Male

DRUGS (1)
  1. SANDOSTATIN [Suspect]
     Indication: DIARRHOEA
     Dosage: 50 MCG
     Route: 058

REACTIONS (5)
  - BLOOD GLUCOSE ABNORMAL [None]
  - BLOOD INSULIN DECREASED [None]
  - GASTRIC HYPOMOTILITY [None]
  - IMPAIRED INSULIN SECRETION [None]
  - URINE AMYLASE DECREASED [None]
